FAERS Safety Report 4939744-1 (Version None)
Quarter: 2006Q1

REPORT INFORMATION
  Report Type: 
  Country: None (occurrence: None)
  Receive Date: 20060307
  Receipt Date: 20060306
  Transmission Date: 20060701
  Serious: Yes (Hospitalization)
  Sender: FDA-Public Use
  Company Number: 218541

PATIENT
  Age: 58 Year
  Sex: Female

DRUGS (6)
  1. NUTROPIN AQ [Suspect]
     Dosage: 10 UNIT, QD
     Dates: start: 20010101
  2. METFORMIN HCL [Concomitant]
  3. PRANDIN [Concomitant]
  4. DRUG UNKNOWN (GENERIC COMPONENT(S) NOT KNOWN) [Concomitant]
  5. FLUIDS (UNK INGREDIENTS) (GENERIC COMPONENT(S) (NOT KNOWN) [Concomitant]
  6. INSULIN (INSULIN) [Concomitant]

REACTIONS (6)
  - BLOOD GLUCOSE INCREASED [None]
  - DEHYDRATION [None]
  - DIARRHOEA [None]
  - INCORRECT DOSE ADMINISTERED [None]
  - VIRAL INFECTION [None]
  - VOMITING [None]
